APPROVED DRUG PRODUCT: CLONIDINE
Active Ingredient: CLONIDINE
Strength: 0.2MG/24HR
Dosage Form/Route: SYSTEM;TRANSDERMAL
Application: A090873 | Product #002 | TE Code: AB
Applicant: ACTAVIS LABORATORIES UT INC
Approved: May 6, 2014 | RLD: No | RS: No | Type: RX